FAERS Safety Report 22282221 (Version 2)
Quarter: 2023Q2

REPORT INFORMATION
  Report Type: Report from Study
  Country: US (occurrence: US)
  Receive Date: 20230504
  Receipt Date: 20230611
  Transmission Date: 20230722
  Serious: Yes (Other)
  Sender: FDA-Public Use
  Company Number: US-ABBVIE-4289326

PATIENT
  Age: 25 Year
  Sex: Female

DRUGS (3)
  1. RINVOQ [Suspect]
     Active Substance: UPADACITINIB
     Indication: Rheumatoid arthritis
     Dosage: 2023 WAS THE CESSATION DATE.
     Route: 048
     Dates: start: 20220405
  2. RINVOQ [Suspect]
     Active Substance: UPADACITINIB
     Indication: Rheumatoid arthritis
     Route: 048
  3. RINVOQ [Suspect]
     Active Substance: UPADACITINIB
     Indication: Rheumatoid arthritis
     Route: 048
     Dates: start: 20220405

REACTIONS (11)
  - Sleeve gastrectomy [Recovered/Resolved]
  - Dermatitis atopic [Recovering/Resolving]
  - Liver function test abnormal [Not Recovered/Not Resolved]
  - Nasal herpes [Recovered/Resolved]
  - Urticaria [Recovered/Resolved]
  - Exposure to communicable disease [Recovered/Resolved]
  - Stress [Unknown]
  - Herpes simplex test positive [Recovered/Resolved]
  - Insulin resistance [Unknown]
  - Acne [Unknown]
  - Hormone level abnormal [Unknown]

NARRATIVE: CASE EVENT DATE: 20230106
